FAERS Safety Report 6983127-X (Version None)
Quarter: 2010Q3

REPORT INFORMATION
  Report Type: 
  Country: None (occurrence: None)
  Receive Date: 20100914
  Receipt Date: 20100607
  Transmission Date: 20110219
  Serious: Yes (Other)
  Sender: FDA-Public Use
  Company Number: US-PFIZER INC-2010071312

PATIENT
  Sex: Male
  Weight: 47.619 kg

DRUGS (4)
  1. LYRICA [Suspect]
     Indication: OFF LABEL USE
     Dosage: 150 MG, 2X/DAY
     Route: 048
     Dates: start: 20100101
  2. LYRICA [Suspect]
     Indication: PAIN OF SKIN
  3. LYRICA [Suspect]
     Indication: POSTURAL ORTHOSTATIC TACHYCARDIA SYNDROME
  4. ZOLOFT [Concomitant]
     Indication: ANXIETY
     Dosage: 37 MG, 1X/DAY
     Route: 048

REACTIONS (7)
  - ASTHENIA [None]
  - DIZZINESS [None]
  - INCORRECT DOSE ADMINISTERED [None]
  - LETHARGY [None]
  - MUSCULAR WEAKNESS [None]
  - MYDRIASIS [None]
  - NAUSEA [None]
